FAERS Safety Report 8116184-8 (Version None)
Quarter: 2012Q1

REPORT INFORMATION
  Report Type: 
  Country: None (occurrence: None)
  Receive Date: 20120206
  Receipt Date: 20120127
  Transmission Date: 20120608
  Serious: Yes (Hospitalization)
  Sender: FDA-Public Use
  Company Number: US-MERCK-1110USA00467

PATIENT
  Age: 47 Year
  Sex: Female
  Weight: 65 kg

DRUGS (4)
  1. FOSAMAX [Suspect]
     Route: 048
     Dates: start: 20040511, end: 20050718
  2. FOSAMAX [Suspect]
     Route: 048
     Dates: start: 20040511, end: 20050718
  3. FOSAMAX [Suspect]
     Indication: OSTEOPOROSIS PROPHYLAXIS
     Route: 048
     Dates: start: 20040407, end: 20060501
  4. FOSAMAX [Suspect]
     Indication: OSTEOPENIA
     Route: 048
     Dates: start: 20040407, end: 20060501

REACTIONS (11)
  - BURSITIS [None]
  - ANGIOEDEMA [None]
  - EPICONDYLITIS [None]
  - NIGHT SWEATS [None]
  - ARTHRALGIA [None]
  - OSTEOARTHRITIS [None]
  - TOOTH DISORDER [None]
  - FEMORAL NECK FRACTURE [None]
  - FALL [None]
  - URINARY TRACT INFECTION [None]
  - MUSCULOSKELETAL PAIN [None]
